FAERS Safety Report 8242547 (Version 5)
Quarter: 2019Q3

REPORT INFORMATION
  Report Type: Spontaneous
  Country: DK (occurrence: DK)
  Receive Date: 20111114
  Receipt Date: 20190905
  Transmission Date: 20191005
  Serious: Yes (Death, Hospitalization, Other)
  Sender: FDA-Public Use
  Company Number: DK-MYLANLABS-2011S1022479

PATIENT
  Sex: Female
  Weight: 103 kg

DRUGS (12)
  1. CIPRALEX [Suspect]
     Active Substance: ESCITALOPRAM OXALATE
     Indication: SCHIZOAFFECTIVE DISORDER
     Dosage: 30 MG, QD (DAILY DOSE OF 1 TABLET IN THE MORNING AND 1.5 TABLET IN THE EVENING)
     Route: 048
     Dates: end: 20111023
  2. ZELDOX [Suspect]
     Active Substance: ZIPRASIDONE
     Indication: SCHIZOAFFECTIVE DISORDER
     Dosage: 40 MG,BID
     Route: 048
     Dates: end: 20111023
  3. CENTYL MED KALIUMKLORID [Concomitant]
     Active Substance: BENDROFLUMETHIAZIDE\POTASSIUM CHLORIDE
     Indication: PRODUCT USED FOR UNKNOWN INDICATION
     Dosage: 1 DOSAGE FORM, QD
     Route: 065
     Dates: end: 20111023
  4. FURIX [Concomitant]
     Indication: PRODUCT USED FOR UNKNOWN INDICATION
     Dosage: UNK
  5. AMLODIPINE [Concomitant]
     Active Substance: AMLODIPINE BESYLATE
     Indication: PRODUCT USED FOR UNKNOWN INDICATION
     Dosage: UNK
  6. ALPRAZOLAM. [Concomitant]
     Active Substance: ALPRAZOLAM
     Dosage: 0.5 MILLIGRAM, QD
  7. LITAREX                            /00033708/ [Suspect]
     Active Substance: LITHIUM CITRATE
     Indication: SCHIZOAFFECTIVE DISORDER
     Dosage: 1.5 DF (IN THE EVENING)
     Route: 048
     Dates: end: 20111023
  8. FRAGMIN [Concomitant]
     Active Substance: DALTEPARIN SODIUM
     Indication: PRODUCT USED FOR UNKNOWN INDICATION
     Dosage: UNK
  9. MIRTAZAPINE. [Suspect]
     Active Substance: MIRTAZAPINE
     Indication: SCHIZOAFFECTIVE DISORDER
     Dosage: 30 MG,QD
     Route: 048
     Dates: start: 2011, end: 20111023
  10. ALPRAZOLAM. [Concomitant]
     Active Substance: ALPRAZOLAM
     Indication: PRODUCT USED FOR UNKNOWN INDICATION
     Dosage: 0.5 MILLIGRAM DAILY
     Dates: start: 20111022
  11. MIRTAZAPINE. [Suspect]
     Active Substance: MIRTAZAPINE
     Indication: DEPRESSION
  12. FERRO DURETTER [Concomitant]
     Indication: PRODUCT USED FOR UNKNOWN INDICATION
     Dosage: 100 MILLIGRAM, QD
     Route: 065
     Dates: end: 20111023

REACTIONS (23)
  - Lactic acidosis [Fatal]
  - Hypertension [Not Recovered/Not Resolved]
  - Humerus fracture [Not Recovered/Not Resolved]
  - Dyspnoea [Not Recovered/Not Resolved]
  - Constipation [Unknown]
  - Acute kidney injury [Fatal]
  - Cardiac hypertrophy [Fatal]
  - Lacunar infarction [Fatal]
  - Hyperventilation [Fatal]
  - Confusional state [Fatal]
  - Urinary tract infection [Unknown]
  - Hyperdynamic left ventricle [Unknown]
  - Fall [Recovered/Resolved]
  - Internal fixation of fracture [Unknown]
  - Renal failure [Fatal]
  - Hepatic enzyme increased [Unknown]
  - Neuroleptic malignant syndrome [Fatal]
  - Rhabdomyolysis [Fatal]
  - Pyrexia [Fatal]
  - Depressed level of consciousness [Unknown]
  - Myocardial infarction [Unknown]
  - Organ failure [Fatal]
  - Hepatic cirrhosis [Fatal]

NARRATIVE: CASE EVENT DATE: 20111021
